FAERS Safety Report 6182957-4 (Version None)
Quarter: 2009Q2

REPORT INFORMATION
  Report Type: 
  Country: None (occurrence: None)
  Receive Date: 20090505
  Receipt Date: 20090420
  Transmission Date: 20091009
  Serious: Yes (Hospitalization)
  Sender: FDA-Public Use
  Company Number: KR-JNJFOC-20090405387

PATIENT
  Age: 31 Year
  Sex: Male
  Weight: 81 kg

DRUGS (9)
  1. DECITABINE (DECITABINE) LYOPHILIZED POWDER [Suspect]
     Indication: MYELODYSPLASTIC SYNDROME
     Dosage: 20 MG/M2, 1 IN 1 DAY, INTRAVENOUS; 20 MG/M2, 1 IN 1 DAY, INTRAVENOUS
     Route: 042
     Dates: start: 20090226, end: 20090302
  2. DECITABINE (DECITABINE) LYOPHILIZED POWDER [Suspect]
     Indication: MYELODYSPLASTIC SYNDROME
     Dosage: 20 MG/M2, 1 IN 1 DAY, INTRAVENOUS; 20 MG/M2, 1 IN 1 DAY, INTRAVENOUS
     Route: 042
     Dates: start: 20090328, end: 20090401
  3. ZOVIRAX (ACICLOVIR) UNSPECIFIED [Concomitant]
  4. CIPROFLOXACIN (CIPROFLOXACIN) UNSPECIFIED [Concomitant]
  5. ITRACONAZOLE [Concomitant]
  6. AUGMENTIN (CLAVULIN) UNSPECIFIED [Concomitant]
  7. HEXAMEDINE (HEXAMIDINE) [Concomitant]
  8. S-MORPHINE (MORPHINE) [Concomitant]
  9. MAGNESIUM OXIDE (MAGNESIUM OXIDE) UNSPECIFIED [Concomitant]

REACTIONS (3)
  - RETINAL DETACHMENT [None]
  - RETINAL HAEMORRHAGE [None]
  - THROMBOCYTOPENIA [None]
